FAERS Safety Report 7786596-0 (Version None)
Quarter: 2011Q3

REPORT INFORMATION
  Report Type: 
  Country: None (occurrence: None)
  Receive Date: 20110929
  Receipt Date: 20110916
  Transmission Date: 20111222
  Serious: Yes (Death)
  Sender: FDA-Public Use
  Company Number: JP-ELI_LILLY_AND_COMPANY-JP201109000904

PATIENT
  Sex: Female
  Weight: 52 kg

DRUGS (11)
  1. TRIHEXYPHENIDYL HCL [Concomitant]
     Indication: EXTRAPYRAMIDAL DISORDER
     Dosage: 6 MG, UNK
     Route: 048
     Dates: start: 20100501
  2. ZYPREXA [Suspect]
     Indication: SCHIZOPHRENIA
     Dosage: 5 MG, UNK
     Route: 048
     Dates: start: 20110715, end: 20110721
  3. DAIOU [Concomitant]
     Indication: CONSTIPATION
     Dosage: 1 G, UNK
     Route: 048
     Dates: start: 20110501
  4. TOPHARMIN [Concomitant]
     Indication: EXTRAPYRAMIDAL DISORDER
     Dosage: 150 MG, UNK
     Route: 048
     Dates: start: 20100401
  5. FLUNITRAZEPAM [Concomitant]
     Indication: INSOMNIA
     Dosage: 4 MG, UNK
     Route: 048
     Dates: start: 20101201
  6. URSO 250 [Concomitant]
     Indication: HEPATITIS B
     Dosage: 300 MG, UNK
     Route: 048
     Dates: start: 20100201
  7. RAMITECT [Concomitant]
     Indication: ONYCHOMYCOSIS
     Dosage: 125 MG, UNK
     Route: 048
     Dates: start: 20110601
  8. ZYPREXA [Suspect]
     Dosage: 10 MG, UNK
     Route: 048
     Dates: start: 20110722, end: 20110822
  9. RISPERDAL [Concomitant]
     Indication: SCHIZOPHRENIA
     Dosage: 12 MG, UNK
     Route: 048
     Dates: start: 20110501, end: 20110822
  10. VALPROATE SODIUM [Concomitant]
     Indication: SCHIZOPHRENIA
     Dosage: 800 MG, UNK
     Route: 048
     Dates: start: 20110601, end: 20110822
  11. PALOLACTIN [Concomitant]
     Indication: EXTRAPYRAMIDAL DISORDER
     Dosage: 7.5 MG, UNK
     Route: 048
     Dates: start: 20100701

REACTIONS (1)
  - PULMONARY ALVEOLAR HAEMORRHAGE [None]
